FAERS Safety Report 6974473 (Version 5)
Quarter: 2014Q2

REPORT INFORMATION
  Report Type: Spontaneous
  Country: US (occurrence: US)
  Receive Date: 20090421
  Receipt Date: 20140408
  Transmission Date: 20141212
  Serious: Yes (Other)
  Sender: FDA-Public Use
  Company Number: US-ASTRAZENECA-2008UW13246

PATIENT
  Age: 62 Year
  Sex: Female
  Weight: 99.8 kg

DRUGS (17)
  1. METOPROLOL [Suspect]
     Indication: HYPERTENSION
     Dosage: CUT THE PILL IN HALF AT THE SCORE LINE AND TOOK 50 MG IN THE MORNING AND 50 MG AT NIGHT
     Route: 048
  2. METOPROLOL [Suspect]
     Indication: HYPERTENSION
     Dosage: 25 OR 50 MG, BID
     Route: 048
     Dates: start: 2001
  3. TOPROL XL [Suspect]
     Route: 048
  4. BRILINTA [Suspect]
     Indication: ACUTE CORONARY SYNDROME
     Route: 048
     Dates: start: 20131121
  5. BRILINTA [Suspect]
     Indication: STENT PLACEMENT
     Route: 048
     Dates: start: 20131121
  6. PLAVIX [Suspect]
     Route: 065
     Dates: start: 2001
  7. PROZAC [Concomitant]
  8. SYNTHROID [Concomitant]
  9. DONNATAL [Concomitant]
  10. ELAVIL [Concomitant]
  11. BABY ASA [Concomitant]
     Indication: MYOCARDIAL INFARCTION
     Route: 048
     Dates: start: 2001
  12. VITAMINS [Concomitant]
  13. UNSPECIFIED BLOOD PRESSURE MEDICINE [Concomitant]
     Indication: BLOOD PRESSURE ABNORMAL
  14. BENADRYL [Concomitant]
     Indication: FOOD ALLERGY
     Dosage: 3 OR 4, 25 MG PILLS, DAILY
     Route: 048
     Dates: start: 20130531
  15. CENTRUM SILVER [Concomitant]
     Indication: VITAMIN SUPPLEMENTATION
     Dosage: 1 PILL, DAILY
     Route: 048
  16. DOXAZOSIN [Concomitant]
     Route: 048
  17. LORAZAPAM [Concomitant]
     Indication: ANXIETY
     Route: 048

REACTIONS (23)
  - Device malfunction [Unknown]
  - Cataract [Unknown]
  - Myocardial infarction [Unknown]
  - Coronary artery occlusion [Unknown]
  - Rectal haemorrhage [Recovered/Resolved]
  - Vaginal haemorrhage [Recovered/Resolved]
  - Haematemesis [Recovered/Resolved]
  - Heart rate increased [Unknown]
  - Blood blister [Unknown]
  - Contusion [Unknown]
  - Irritable bowel syndrome [Unknown]
  - Body height decreased [Not Recovered/Not Resolved]
  - Weight decreased [Unknown]
  - Epistaxis [Recovered/Resolved]
  - Loose tooth [Unknown]
  - Palpitations [Unknown]
  - Asthenia [Unknown]
  - Headache [Unknown]
  - Diarrhoea [Unknown]
  - Dyspnoea [Unknown]
  - Chest pain [Recovered/Resolved]
  - Intentional product misuse [Unknown]
  - Drug dose omission [Unknown]
